FAERS Safety Report 4980003-9 (Version None)
Quarter: 2006Q2

REPORT INFORMATION
  Report Type: 
  Country: None (occurrence: None)
  Receive Date: 20060421
  Receipt Date: 20060413
  Transmission Date: 20061013
  Serious: Yes (Hospitalization)
  Sender: FDA-Public Use
  Company Number: US-MERCK-0604USA02172

PATIENT
  Age: 78 Year
  Sex: Female

DRUGS (6)
  1. ZOCOR [Suspect]
     Indication: HYPERLIPIDAEMIA
     Route: 048
     Dates: start: 20000101, end: 20020101
  2. DILTIAZEM HYDROCHLORIDE [Concomitant]
     Route: 065
  3. PLAVIX [Concomitant]
     Route: 065
  4. LEXAPRO [Concomitant]
     Route: 065
  5. ZETIA [Suspect]
     Route: 048
  6. LIPITOR [Suspect]
     Route: 065

REACTIONS (2)
  - DYSARTHRIA [None]
  - NERVOUS SYSTEM DISORDER [None]
